FAERS Safety Report 25119621 (Version 2)
Quarter: 2025Q1

REPORT INFORMATION
  Report Type: Spontaneous
  Country: JP (occurrence: JP)
  Receive Date: 20250325
  Receipt Date: 20250327
  Transmission Date: 20250409
  Serious: Yes (Other)
  Sender: MERCK SHARP & DOHME LLC
  Company Number: JP-009507513-2268083

PATIENT
  Age: 98 Year
  Sex: Female

DRUGS (1)
  1. LAGEVRIO [Suspect]
     Active Substance: MOLNUPIRAVIR
     Indication: COVID-19 treatment
     Route: 048
     Dates: start: 20250318, end: 202503

REACTIONS (2)
  - Hallucination [Unknown]
  - Delirium [Unknown]

NARRATIVE: CASE EVENT DATE: 20250301
